FAERS Safety Report 5469661-2 (Version None)
Quarter: 2007Q3

REPORT INFORMATION
  Report Type: 
  Country: None (occurrence: None)
  Receive Date: 20070927
  Receipt Date: 20070917
  Transmission Date: 20080115
  Serious: Yes (Hospitalization)
  Sender: FDA-Public Use
  Company Number: GB-ROCHE-511984

PATIENT
  Age: 72 Year
  Sex: Female
  Weight: 104.7 kg

DRUGS (4)
  1. XENICAL [Suspect]
     Indication: OBESITY
     Route: 048
     Dates: start: 20070517
  2. LANSOPRAZOLE [Concomitant]
  3. 1 CONCOMITANT DRUG [Concomitant]
     Indication: BLOOD PRESSURE
  4. 1 CONCOMITANT DRUG [Concomitant]

REACTIONS (3)
  - ATRIAL FIBRILLATION [None]
  - ILL-DEFINED DISORDER [None]
  - SYNCOPE [None]
